FAERS Safety Report 6563973-7 (Version None)
Quarter: 2010Q1

REPORT INFORMATION
  Report Type: 
  Country: None (occurrence: None)
  Receive Date: 20100131
  Receipt Date: 20100122
  Transmission Date: 20100710
  Serious: Yes (Hospitalization)
  Sender: FDA-Public Use
  Company Number: US-JNJFOC-20100111006

PATIENT
  Age: 17 Year
  Sex: Male

DRUGS (2)
  1. MOTRIN IB [Suspect]
     Indication: PAIN
     Route: 048
  2. MOTRIN IB [Suspect]
     Indication: UPPER LIMB FRACTURE
     Route: 048

REACTIONS (5)
  - PRODUCT QUALITY ISSUE [None]
  - PYREXIA [None]
  - RASH GENERALISED [None]
  - URTICARIA [None]
  - VOMITING [None]
